FAERS Safety Report 5313028-4 (Version None)
Quarter: 2007Q2

REPORT INFORMATION
  Report Type: 
  Country: None (occurrence: None)
  Receive Date: 20070430
  Receipt Date: 20070418
  Transmission Date: 20071010
  Serious: Yes (Hospitalization, Other)
  Sender: FDA-Public Use
  Company Number: US-PFIZER INC-2007021056

PATIENT
  Sex: Male

DRUGS (14)
  1. CHANTIX [Suspect]
     Indication: SMOKING CESSATION THERAPY
     Route: 048
  2. AVANDAMET [Concomitant]
     Route: 048
  3. VYTORIN [Concomitant]
     Dosage: TEXT:10/40
     Route: 048
  4. HYDROCHLOROTHIAZIDE [Concomitant]
     Dosage: DAILY DOSE:25MG-FREQ:DAILY
     Route: 048
  5. ALTACE [Concomitant]
     Dosage: DAILY DOSE:10MG-FREQ:DAILY
     Route: 048
  6. WARFARIN SODIUM [Concomitant]
     Dosage: DAILY DOSE:5MG-FREQ:DAILY
     Route: 048
  7. LORCET-HD [Concomitant]
     Route: 048
  8. LANTUS [Concomitant]
     Dosage: TEXT:110 UNITS-FREQ:AT BEDTIME
  9. NOVOLOG [Concomitant]
  10. FISH OIL [Concomitant]
  11. VALIUM [Concomitant]
  12. XOPENEX [Concomitant]
     Dosage: TEXT:2 PUFFS-FREQ:EVERY 4 HOURS AS NEEDED
  13. TUSSIONEX [Concomitant]
     Dosage: TEXT:1 TSP-FREQ:AT BEDTIME AS NEEDED
  14. ASPIRIN [Concomitant]

REACTIONS (5)
  - CHRONIC OBSTRUCTIVE PULMONARY DISEASE [None]
  - DYSLIPIDAEMIA [None]
  - HYPERTENSION [None]
  - THROMBOPHLEBITIS [None]
  - WEIGHT INCREASED [None]
